FAERS Safety Report 14472708 (Version 4)
Quarter: 2018Q1

REPORT INFORMATION
  Report Type: Report from Study
  Country: US (occurrence: US)
  Receive Date: 20180201
  Receipt Date: 20180302
  Transmission Date: 20180509
  Serious: Yes (Death, Other)
  Sender: FDA-Public Use
  Company Number: US-AMGEN-USACT2018014008

PATIENT
  Age: 65 Year
  Sex: Male
  Weight: 75.3 kg

DRUGS (16)
  1. LASIX [Concomitant]
     Active Substance: FUROSEMIDE
     Indication: CARDIAC FAILURE CONGESTIVE
  2. CARVEDILOL. [Concomitant]
     Active Substance: CARVEDILOL
     Indication: CARDIAC FAILURE
     Dosage: 12.5 MG, (6.25 MG,2 IN 1 D)
     Route: 048
     Dates: start: 20171027
  3. VENETOCLAX. [Suspect]
     Active Substance: VENETOCLAX
     Indication: PLASMA CELL MYELOMA
     Dosage: 800 MG, 1 IN 1 D
     Route: 048
     Dates: start: 20170522, end: 20180124
  4. ATIVAN [Concomitant]
     Active Substance: LORAZEPAM
     Indication: DEPRESSION
     Dosage: 6 MG, (2 MG,3 IN 1 D)
     Route: 048
     Dates: start: 20170512
  5. ZOMETA [Concomitant]
     Active Substance: ZOLEDRONIC ACID
     Indication: PROPHYLAXIS
     Dosage: 4 MG, 1 IN 3 M
     Route: 042
     Dates: start: 20170828
  6. LOSARTAN. [Concomitant]
     Active Substance: LOSARTAN
     Indication: CARDIAC FAILURE
     Dosage: 25 MG, 1 IN 1 D
     Route: 048
     Dates: start: 20171215
  7. RABEPRAZOLE [Concomitant]
     Active Substance: RABEPRAZOLE
     Indication: GASTROOESOPHAGEAL REFLUX DISEASE
     Dosage: 20 MG, AS REQUIRED
     Route: 048
     Dates: start: 2015
  8. XARELTO [Concomitant]
     Active Substance: RIVAROXABAN
     Indication: DEEP VEIN THROMBOSIS
     Dosage: 20 MG, 1 IN 1 D
     Route: 048
     Dates: start: 20150210
  9. ACYCLOVIR. [Concomitant]
     Active Substance: ACYCLOVIR
     Indication: PROPHYLAXIS
     Dosage: 800 MG, (400 MG,2 IN 1 D)
     Route: 048
     Dates: start: 20170619
  10. DEXAMETHASONE. [Suspect]
     Active Substance: DEXAMETHASONE
     Indication: PLASMA CELL MYELOMA
     Dosage: 40 MG, DAY 1, 8, 15 AND 22 OF EACH 28-DAY CYCLE
     Route: 048
     Dates: start: 20170522, end: 20180122
  11. NORTRIPTYLINE [Concomitant]
     Active Substance: NORTRIPTYLINE
     Indication: DEPRESSION
     Dosage: 75 MG, 1 IN 1 D
     Route: 048
     Dates: start: 20170315
  12. LASIX [Concomitant]
     Active Substance: FUROSEMIDE
     Indication: FLUID RETENTION
     Dosage: 40 MG, AS REQUIRED
     Route: 048
     Dates: start: 20171027
  13. CARFILZOMIB [Suspect]
     Active Substance: CARFILZOMIB
     Indication: PLASMA CELL MYELOMA
     Dosage: 27 MG/M2, DAY 1, 8, AND 15 OF EACH 28-DAY CYCLE
     Route: 042
     Dates: start: 20170522, end: 20180123
  14. TRAZODONE [Concomitant]
     Active Substance: TRAZODONE HYDROCHLORIDE
     Indication: DEPRESSION
     Dosage: 150 MG, 1 IN 1 D
     Route: 048
     Dates: start: 20160906
  15. ALOXI [Concomitant]
     Active Substance: PALONOSETRON HYDROCHLORIDE
     Dosage: 0.25 MG, 1 IN 1 D (WEEKLY WHEN GIVEN STUDY DRUG)
     Route: 042
     Dates: start: 20170522
  16. RAMIPRIL. [Concomitant]
     Active Substance: RAMIPRIL
     Indication: CARDIAC FAILURE CONGESTIVE
     Dosage: 10 MG, (5 MG, 2 IN 1 D)
     Route: 048
     Dates: start: 20171026

REACTIONS (1)
  - Death [Fatal]

NARRATIVE: CASE EVENT DATE: 20180124
